FAERS Safety Report 10203485 (Version 10)
Quarter: 2020Q4

REPORT INFORMATION
  Report Type: Other
  Country: CA (occurrence: CA)
  Receive Date: 20140529
  Receipt Date: 20201113
  Transmission Date: 20210113
  Serious: Yes (Life-Threatening, Hospitalization)
  Sender: FDA-Public Use
  Company Number: CA-ROCHE-1409356

PATIENT
  Age: 54 Year
  Sex: Male

DRUGS (7)
  1. XOLAIR [Suspect]
     Active Substance: OMALIZUMAB
     Route: 058
     Dates: start: 20140726
  2. XOLAIR [Suspect]
     Active Substance: OMALIZUMAB
     Route: 058
     Dates: start: 20120202, end: 20120202
  3. FASENRA [Concomitant]
     Active Substance: BENRALIZUMAB
  4. XOLAIR [Suspect]
     Active Substance: OMALIZUMAB
     Route: 058
  5. XOLAIR [Suspect]
     Active Substance: OMALIZUMAB
     Indication: ASTHMA
     Route: 058
     Dates: start: 20051017, end: 20060313
  6. PREDNISONE. [Concomitant]
     Active Substance: PREDNISONE
     Indication: PRODUCT USED FOR UNKNOWN INDICATION
     Dosage: 25 MG, QD
     Route: 065
  7. PREDNISONE. [Concomitant]
     Active Substance: PREDNISONE
     Dosage: 50 MG, QD (WILL RETURN TO 25 MG QD)
     Route: 065
     Dates: start: 20140504, end: 20140523

REACTIONS (10)
  - Dyspnoea [Unknown]
  - Asthma [Not Recovered/Not Resolved]
  - Feeling abnormal [Unknown]
  - Asthma exercise induced [Unknown]
  - Product dose omission issue [Unknown]
  - Nasopharyngitis [Unknown]
  - Cyanosis [Unknown]
  - Malaise [Unknown]
  - Near death experience [Unknown]
  - Bronchospasm [Unknown]

NARRATIVE: CASE EVENT DATE: 201304
